FAERS Safety Report 18513560 (Version 1)
Quarter: 2020Q4

REPORT INFORMATION
  Report Type: Report from Study
  Country: US (occurrence: US)
  Receive Date: 20201117
  Receipt Date: 20201117
  Transmission Date: 20210114
  Serious: Yes (Hospitalization, Other)
  Sender: FDA-Public Use
  Company Number: US-SHIRE-US202030335

PATIENT
  Age: 75 Year
  Sex: Female
  Weight: 26.76 kg

DRUGS (12)
  1. TEDUGLUTIDE [Suspect]
     Active Substance: TEDUGLUTIDE
     Dosage: 1.75 MILLIGRAM, QD
     Route: 058
     Dates: start: 20200413
  2. TEDUGLUTIDE [Suspect]
     Active Substance: TEDUGLUTIDE
     Indication: SHORT-BOWEL SYNDROME
     Dosage: 1.75 MILLIGRAM, QD
     Route: 058
     Dates: start: 20200128
  3. TEDUGLUTIDE [Suspect]
     Active Substance: TEDUGLUTIDE
     Dosage: 1.75 MILLIGRAM, QD
     Route: 058
     Dates: start: 20200430
  4. TEDUGLUTIDE [Suspect]
     Active Substance: TEDUGLUTIDE
     Dosage: 1.75 MILLIGRAM, QD
     Route: 058
     Dates: start: 20200430
  5. TEDUGLUTIDE [Suspect]
     Active Substance: TEDUGLUTIDE
     Dosage: 1.75 MILLIGRAM, QD
     Route: 058
     Dates: start: 20200430
  6. TEDUGLUTIDE [Suspect]
     Active Substance: TEDUGLUTIDE
     Indication: SHORT-BOWEL SYNDROME
     Dosage: 1.75 MILLIGRAM, QD
     Route: 058
     Dates: start: 20200128
  7. TEDUGLUTIDE [Suspect]
     Active Substance: TEDUGLUTIDE
     Dosage: 1.75 MILLIGRAM, QD
     Route: 058
     Dates: start: 20200430
  8. TEDUGLUTIDE [Suspect]
     Active Substance: TEDUGLUTIDE
     Dosage: 1.75 MILLIGRAM, QD
     Route: 058
     Dates: start: 20200413
  9. TEDUGLUTIDE [Suspect]
     Active Substance: TEDUGLUTIDE
     Dosage: 1.75 MILLIGRAM, QD
     Route: 058
     Dates: start: 20200413
  10. TEDUGLUTIDE [Suspect]
     Active Substance: TEDUGLUTIDE
     Indication: SHORT-BOWEL SYNDROME
     Dosage: 1.75 MILLIGRAM, QD
     Route: 058
     Dates: start: 20200128
  11. TEDUGLUTIDE [Suspect]
     Active Substance: TEDUGLUTIDE
     Dosage: 1.75 MILLIGRAM, QD
     Route: 058
     Dates: start: 20200413
  12. TEDUGLUTIDE [Suspect]
     Active Substance: TEDUGLUTIDE
     Indication: SHORT-BOWEL SYNDROME
     Dosage: 1.75 MILLIGRAM, QD
     Route: 058
     Dates: start: 20200128

REACTIONS (3)
  - Weight decreased [Unknown]
  - Renal failure [Unknown]
  - Dehydration [Unknown]

NARRATIVE: CASE EVENT DATE: 20200908
